FAERS Safety Report 15842863 (Version 3)
Quarter: 2019Q1

REPORT INFORMATION
  Report Type: Report from Study
  Country: US (occurrence: US)
  Receive Date: 20190118
  Receipt Date: 20190204
  Transmission Date: 20190417
  Serious: Yes (Death, Hospitalization, Other)
  Sender: FDA-Public Use
  Company Number: US-RETROPHIN, INC.-2019RTN00003

PATIENT
  Age: 0 Year
  Sex: Female
  Weight: 3.37 kg

DRUGS (13)
  1. ACTIGALL [Concomitant]
     Active Substance: URSODIOL
     Dosage: 35 MG, 3X/DAY
     Dates: start: 20181124, end: 20190104
  2. MCT OIL [Concomitant]
     Dosage: 2 ML, 3X/DAY
     Dates: start: 20181227, end: 20190104
  3. ALBUTEROL. [Concomitant]
     Active Substance: ALBUTEROL
     Dosage: 2.5 MG, 4X/DAY + EVERY 6 HOURS AS NEEDED
     Dates: start: 20181207, end: 20190104
  4. BUDESONIDE. [Concomitant]
     Active Substance: BUDESONIDE
     Dosage: 0.5 MG, 2X/DAY
     Route: 055
     Dates: start: 20181207, end: 20190104
  5. FERROUS SULFATE. [Concomitant]
     Active Substance: FERROUS SULFATE
     Dosage: 37.5 MG, 2X/DAY
     Route: 048
     Dates: start: 20181208, end: 20190104
  6. INTRALIPID [Concomitant]
     Active Substance: EGG PHOSPHOLIPIDS\GLYCERIN\SOYBEAN OIL
     Dosage: UNK
     Dates: start: 20190102, end: 20190104
  7. GENTAMICIN. [Concomitant]
     Active Substance: GENTAMICIN
     Dosage: 13.5 MG, 1X/DAY
     Route: 042
     Dates: start: 20190104, end: 20190104
  8. PHENOBARBITAL. [Concomitant]
     Active Substance: PHENOBARBITAL
     Dosage: 11 MG, 2X/DAY
     Route: 048
     Dates: start: 20181127, end: 20190104
  9. AQUADEKS [Concomitant]
     Active Substance: MINERALS\VITAMINS
     Dosage: 1 ML, 1X/DAY
     Dates: start: 20181208, end: 20190104
  10. OXACILLIN [Concomitant]
     Active Substance: OXACILLIN SODIUM
     Dosage: 84.25 MG, 4X/DAY
     Route: 042
     Dates: start: 20190104, end: 20190104
  11. CHOLIC ACID [Suspect]
     Active Substance: CHOLIC ACID
     Indication: CEREBROHEPATORENAL SYNDROME
     Dosage: 50 MG, 1X/DAY
     Route: 048
     Dates: start: 20181222, end: 20190105
  12. AMOXICILLIN. [Concomitant]
     Active Substance: AMOXICILLIN
     Dosage: 55 MG, 1X/DAY
     Route: 048
     Dates: start: 20181208, end: 20190104
  13. SILDENAFIL. [Concomitant]
     Active Substance: SILDENAFIL
     Dosage: 2MG/KG, 3X/DAY
     Dates: start: 20181112, end: 20190104

REACTIONS (9)
  - Renal failure [Fatal]
  - Therapy non-responder [Not Recovered/Not Resolved]
  - Acute hepatic failure [Fatal]
  - Disease progression [Fatal]
  - Respiratory failure [Not Recovered/Not Resolved]
  - Cardiopulmonary failure [Fatal]
  - Encephalopathy [Not Recovered/Not Resolved]
  - Metabolic acidosis [Not Recovered/Not Resolved]
  - Cerebrohepatorenal syndrome [Fatal]

NARRATIVE: CASE EVENT DATE: 2018
